FAERS Safety Report 14848361 (Version 7)
Quarter: 2019Q4

REPORT INFORMATION
  Report Type: Spontaneous
  Country: US (occurrence: US)
  Receive Date: 20180504
  Receipt Date: 20191224
  Transmission Date: 20200122
  Serious: Yes (Hospitalization)
  Sender: FDA-Public Use
  Company Number: US-PFIZER INC-2018182060

PATIENT
  Age: 88 Year
  Sex: Female
  Weight: 55 kg

DRUGS (9)
  1. EXEMESTANE. [Concomitant]
     Active Substance: EXEMESTANE
     Indication: HORMONE THERAPY
     Dosage: 25 MG, 1X/DAY(IN THE AFTERNOON)
     Route: 048
     Dates: start: 201804, end: 201908
  2. HYDROCHLOROTHIAZIDE. [Concomitant]
     Active Substance: HYDROCHLOROTHIAZIDE
     Dosage: UNK
     Dates: start: 201804
  3. OMEPRAZOLE. [Concomitant]
     Active Substance: OMEPRAZOLE
     Dosage: UNK
     Dates: start: 201804
  4. IBRANCE [Suspect]
     Active Substance: PALBOCICLIB
     Indication: BREAST CANCER METASTATIC
     Dosage: 125 MG, CYCLIC (DAILY FOR 21 DAYS, THEN 1 WEEK OFF)
     Route: 048
     Dates: start: 201804
  5. IBRANCE [Suspect]
     Active Substance: PALBOCICLIB
     Dosage: 125 MG, CYCLIC (DAILY FOR 21 DAYS, THEN 1 WEEK OFF)
     Route: 048
     Dates: end: 201908
  6. EXEMESTANE. [Concomitant]
     Active Substance: EXEMESTANE
     Dosage: 25 MG, UNK
     Dates: start: 201804, end: 201907
  7. RAMIPRIL. [Concomitant]
     Active Substance: RAMIPRIL
     Dosage: UNK
     Dates: start: 201804
  8. IBRANCE [Suspect]
     Active Substance: PALBOCICLIB
     Dosage: 125 MG, CYCLIC (DAILY FOR 21 DAYS, THEN 1 WEEK OFF)
     Route: 048
  9. LEVOTHYROXINE SODIUM. [Concomitant]
     Active Substance: LEVOTHYROXINE SODIUM
     Dosage: UNK
     Dates: start: 201804

REACTIONS (11)
  - Fatigue [Not Recovered/Not Resolved]
  - Rash [Recovered/Resolved]
  - Calcium deficiency [Recovered/Resolved]
  - Osteoporosis [Recovered/Resolved]
  - Oral pain [Recovered/Resolved]
  - Stomatitis [Recovered/Resolved]
  - Nasopharyngitis [Unknown]
  - Alopecia [Recovered/Resolved]
  - Hypoacusis [Not Recovered/Not Resolved]
  - Acne [Recovered/Resolved]
  - Blister [Recovered/Resolved]

NARRATIVE: CASE EVENT DATE: 2018
